FAERS Safety Report 4412342-4 (Version None)
Quarter: 2004Q2

REPORT INFORMATION
  Report Type: 
  Country: None (occurrence: None)
  Receive Date: 20040630
  Receipt Date: 20040304
  Transmission Date: 20050107
  Serious: No
  Sender: FDA-Public Use
  Company Number: 04P-163-0252365-00

PATIENT
  Age: 50 Year
  Sex: Female

DRUGS (9)
  1. HUMIRA [Suspect]
     Indication: RHEUMATOID ARTHRITIS
     Dosage: 40 MG, 1 IN 2 WK, SUBCUTANEOUS
     Route: 058
     Dates: start: 20031001
  2. MELOXICAM [Concomitant]
  3. LEVOTHYROXINE SODIUM [Concomitant]
  4. PSEUDOPHED [Concomitant]
  5. ACETAMINOPHEN [Concomitant]
  6. TOCOPHEROL CONCENTRATE CAP [Concomitant]
  7. ASCORBIC ACID [Concomitant]
  8. MULTI-VITAMINS [Concomitant]
  9. PREDNISONE [Concomitant]

REACTIONS (4)
  - BLOOD POTASSIUM INCREASED [None]
  - DRUG INEFFECTIVE [None]
  - FLUSHING [None]
  - INFLUENZA LIKE ILLNESS [None]
